FAERS Safety Report 10551133 (Version 1)
Quarter: 2014Q4

REPORT INFORMATION
  Report Type: Spontaneous
  Country: US (occurrence: US)
  Receive Date: 20141029
  Receipt Date: 20141029
  Transmission Date: 20150529
  Serious: Yes (Disabling, Other)
  Sender: FDA-Public Use
  Company Number: US-UCBSA-2014015208

PATIENT
  Age: 9 Year
  Sex: Female

DRUGS (2)
  1. DEPAKOTE [Concomitant]
     Active Substance: DIVALPROEX SODIUM
     Indication: PRODUCT USED FOR UNKNOWN INDICATION
     Dosage: UNK
  2. KEPPRA [Suspect]
     Active Substance: LEVETIRACETAM
     Indication: SEIZURE
     Dosage: UNK

REACTIONS (12)
  - Affective disorder [Unknown]
  - Depressed mood [Unknown]
  - Affect lability [Unknown]
  - Paranoia [Unknown]
  - Suicidal behaviour [Unknown]
  - Agitation [Unknown]
  - Crying [Unknown]
  - Aggression [Unknown]
  - Attention deficit/hyperactivity disorder [Unknown]
  - Anger [Unknown]
  - Gait disturbance [Unknown]
  - Disability [Unknown]
